FAERS Safety Report 8564178-0 (Version None)
Quarter: 2012Q3

REPORT INFORMATION
  Report Type: 
  Country: None (occurrence: None)
  Receive Date: 20120803
  Receipt Date: 20120725
  Transmission Date: 20120928
  Serious: Yes (Other)
  Sender: FDA-Public Use
  Company Number: US-JNJFOC-20120715130

PATIENT
  Sex: Female
  Weight: 71.22 kg

DRUGS (5)
  1. REMICADE [Suspect]
     Route: 042
     Dates: start: 20110101, end: 20110101
  2. REMICADE [Suspect]
     Route: 042
     Dates: start: 20110101, end: 20120101
  3. METHOTREXATE [Suspect]
     Indication: RHEUMATOID ARTHRITIS
     Route: 048
     Dates: start: 20110101
  4. REMICADE [Suspect]
     Indication: RHEUMATOID ARTHRITIS
     Route: 042
     Dates: start: 20120401
  5. FOLIC ACID [Concomitant]
     Route: 048
     Dates: start: 20110101

REACTIONS (3)
  - HERPES ZOSTER [None]
  - BURNING SENSATION [None]
  - HEPATITIS A [None]
